FAERS Safety Report 24902072 (Version 3)
Quarter: 2025Q1

REPORT INFORMATION
  Report Type: Report from Study
  Country: US (occurrence: US)
  Receive Date: 20250129
  Receipt Date: 20250213
  Transmission Date: 20250408
  Serious: Yes (Hospitalization)
  Sender: JOHNSON AND JOHNSON
  Company Number: US-JNJFOC-20250164457

PATIENT
  Age: 57 Year
  Sex: Female

DRUGS (4)
  1. UPTRAVI [Suspect]
     Active Substance: SELEXIPAG
     Indication: Pulmonary arterial hypertension
     Route: 048
     Dates: start: 202501
  2. UPTRAVI [Suspect]
     Active Substance: SELEXIPAG
     Indication: Pulmonary arterial hypertension
     Route: 048
     Dates: start: 202501
  3. UPTRAVI [Suspect]
     Active Substance: SELEXIPAG
     Route: 048
     Dates: start: 202501
  4. TYVASO TD300 [Concomitant]

REACTIONS (14)
  - Abdominal pain upper [Unknown]
  - Vomiting [Unknown]
  - Tremor [Unknown]
  - Chills [Unknown]
  - Appendicectomy [Unknown]
  - Fluid retention [Recovered/Resolved]
  - Pain [Recovered/Resolved]
  - Back pain [Unknown]
  - Diarrhoea [Unknown]
  - Pain in jaw [Unknown]
  - Arthralgia [Unknown]
  - Decreased appetite [Unknown]
  - Myalgia [Unknown]
  - Burning sensation [Unknown]

NARRATIVE: CASE EVENT DATE: 20250116
